FAERS Safety Report 5008795-3 (Version None)
Quarter: 2006Q2

REPORT INFORMATION
  Report Type: 
  Country: None (occurrence: None)
  Receive Date: 20060518
  Receipt Date: 20060510
  Transmission Date: 20061013
  Serious: Yes (Life-Threatening, Hospitalization, Other)
  Sender: FDA-Public Use
  Company Number: HQWYE823013APR06

PATIENT
  Age: 69 Year
  Sex: Male

DRUGS (6)
  1. CORDARONE [Suspect]
     Indication: DRUG USE FOR UNKNOWN INDICATION
     Dosage: 1000 MG 1X PER 1 WK, ORAL
     Route: 048
     Dates: end: 20050827
  2. INEXIUM (ESOMEPRAZOLE, ) [Suspect]
     Indication: DRUG USE FOR UNKNOWN INDICATION
     Dosage: 40 MG 1X PER 1 DAY, ORAL
     Route: 048
  3. VFEND [Suspect]
     Indication: DRUG USE FOR UNKNOWN INDICATION
     Dosage: 400 MG 1X PER 1 DAY, ORAL
     Route: 048
     Dates: start: 20050520, end: 20050908
  4. FUROSEMIDE [Concomitant]
  5. FLUOXETINE [Concomitant]
  6. ALPRAZOLAM [Concomitant]

REACTIONS (7)
  - ATRIOVENTRICULAR BLOCK FIRST DEGREE [None]
  - DIARRHOEA [None]
  - DRUG INTERACTION [None]
  - HYPOKALAEMIA [None]
  - MALAISE [None]
  - TORSADE DE POINTES [None]
  - VENTRICULAR ARRHYTHMIA [None]
